FAERS Safety Report 10108870 (Version 1)
Quarter: 2014Q2

REPORT INFORMATION
  Report Type: Spontaneous
  Country: US (occurrence: None)
  Receive Date: 20140423
  Receipt Date: 20140423
  Transmission Date: 20141212
  Serious: No
  Sender: FDA-Public Use
  Company Number: 1713747-2014-99950

PATIENT
  Sex: Female

DRUGS (2)
  1. FRESENIUS DELFLEX DEXTROSE SOLUTION [Suspect]
     Indication: PERITONEAL DIALYSIS
  2. FRESENIUS DELFLEX DEXTROSE SOLUTION [Suspect]
     Indication: RENAL FAILURE CHRONIC

REACTIONS (1)
  - Peritonitis [None]
